FAERS Safety Report 4417262-7 (Version None)
Quarter: 2004Q3

REPORT INFORMATION
  Report Type: 
  Country: None (occurrence: None)
  Receive Date: 20040806
  Receipt Date: 20040728
  Transmission Date: 20050211
  Serious: Yes (Hospitalization)
  Sender: FDA-Public Use
  Company Number: US-GLAXOSMITHKLINE-A0521201A

PATIENT
  Sex: Female

DRUGS (1)
  1. VALTREX [Suspect]

REACTIONS (2)
  - APPENDICITIS [None]
  - MEDICATION ERROR [None]
